FAERS Safety Report 7629052-2 (Version None)
Quarter: 2011Q3

REPORT INFORMATION
  Report Type: 
  Country: None (occurrence: None)
  Receive Date: 20110722
  Receipt Date: 20110718
  Transmission Date: 20111222
  Serious: Yes (Hospitalization)
  Sender: FDA-Public Use
  Company Number: FR-PFIZER INC-2011161643

PATIENT
  Age: 81 Year
  Sex: Female

DRUGS (10)
  1. RUBOZINC [Concomitant]
     Dosage: UNK
  2. AMLODIPINE BESYLATE [Suspect]
     Dosage: 1 DF, 1X/DAY
     Route: 048
     Dates: start: 20100527, end: 20100610
  3. FORLAX [Concomitant]
     Dosage: UNK
  4. ATORVASTATIN CALCIUM [Concomitant]
     Dosage: 10 MG, DAILY
  5. OXAZEPAM [Concomitant]
     Dosage: 10 MG, DAILY
  6. KARDEGIC [Concomitant]
     Dosage: 75 MG, DAILY
  7. BACTRIM [Suspect]
     Dosage: UNK
     Route: 048
     Dates: start: 20100601, end: 20100601
  8. FUMAFER [Concomitant]
     Dosage: UNK
  9. FOLIC ACID [Concomitant]
     Dosage: UNK
  10. NICOBION [Concomitant]
     Dosage: UNK

REACTIONS (1)
  - DRUG RASH WITH EOSINOPHILIA AND SYSTEMIC SYMPTOMS [None]
